FAERS Safety Report 4344834-0 (Version None)
Quarter: 2004Q2

REPORT INFORMATION
  Report Type: 
  Country: None (occurrence: None)
  Receive Date: 20040420
  Receipt Date: 20040413
  Transmission Date: 20050107
  Serious: Yes (Disabling)
  Sender: FDA-Public Use
  Company Number: HQWYE621811APR03

PATIENT
  Age: 36 Year
  Sex: Female

DRUGS (9)
  1. DIMETAPP [Suspect]
     Indication: COUGH
     Dosage: ORAL
     Route: 048
     Dates: start: 19951101
  2. DIMETAPP [Suspect]
     Indication: NASOPHARYNGITIS
     Dosage: ORAL
     Route: 048
     Dates: start: 19951101
  3. ALKA-SELTZER PLUS (ACETYLSALICYLIC/CHLORPHENAMINE MALEATE/PHENYLPROPAN [Suspect]
     Indication: NASOPHARYNGITIS
     Dosage: ORAL
     Route: 048
     Dates: start: 19950101, end: 19951107
  4. ALKA-SELTZER PLUS COLD (ACETYLSALICYLIC ACID/CHLORPHENAMINE MALEATE/PH [Suspect]
     Indication: COUGH
     Dosage: ORAL
     Route: 048
     Dates: start: 19951101
  5. ALKA-SELTZER PLUS COLD (ACETYLSALICYLIC ACID/CHLORPHENAMINE MALEATE/PH [Suspect]
     Indication: NASOPHARYNGITIS
     Dosage: ORAL
     Route: 048
     Dates: start: 19951101
  6. DEXATRIM (CAFFEINE/PHENYLPROPANOLAMINE HYDROCHLORIDE, ) [Suspect]
     Indication: WEIGHT DECREASED
     Dosage: ORAL
     Route: 048
     Dates: start: 19950101, end: 19951107
  7. DIMETAPP [Suspect]
     Indication: NASOPHARYNGITIS
     Dosage: ORAL
     Route: 048
     Dates: start: 19950101, end: 19951107
  8. TRIAMINIC-12 [Suspect]
     Indication: COUGH
     Dosage: ORAL
     Route: 048
     Dates: start: 19950101, end: 19951107
  9. TRIAMINIC-12 [Suspect]
     Indication: NASOPHARYNGITIS
     Dosage: ORAL
     Route: 048
     Dates: start: 19950101, end: 19951107

REACTIONS (3)
  - CEREBROVASCULAR ACCIDENT [None]
  - PAIN [None]
  - POLYTRAUMATISM [None]
